FAERS Safety Report 5839788-1 (Version None)
Quarter: 2008Q3

REPORT INFORMATION
  Report Type: 
  Country: None (occurrence: None)
  Receive Date: 20080807
  Receipt Date: 20080807
  Transmission Date: 20090109
  Serious: Yes (Hospitalization)
  Sender: FDA-Public Use
  Company Number: None

PATIENT
  Age: 61 Year
  Sex: Female
  Weight: 80.831 kg

DRUGS (9)
  1. RITUXIMAB [Suspect]
     Indication: ANTIPHOSPHOLIPID SYNDROME
     Dosage: 1000 MG IV
     Route: 042
     Dates: start: 20080715
  2. LIPITOR [Concomitant]
  3. HYZAAR [Concomitant]
  4. MOBIC [Concomitant]
  5. HYDROXYCHLOROQUINE SULFATE [Concomitant]
  6. GLUCOPHAGE [Concomitant]
  7. NEXIUM [Concomitant]
  8. ZYRTEC [Concomitant]
  9. VALTREX [Concomitant]

REACTIONS (8)
  - CELLULITIS [None]
  - DEHYDRATION [None]
  - DIARRHOEA [None]
  - GASTROENTERITIS VIRAL [None]
  - HERPES ZOSTER [None]
  - NAUSEA [None]
  - PYREXIA [None]
  - VOMITING [None]
